FAERS Safety Report 25470112 (Version 1)
Quarter: 2025Q2

REPORT INFORMATION
  Report Type: Spontaneous
  Country: US (occurrence: US)
  Receive Date: 20250623
  Receipt Date: 20250623
  Transmission Date: 20250717
  Serious: No
  Sender: BRACCO
  Company Number: US-BRACCO-2024US05629

PATIENT
  Age: 63 Year
  Sex: Male

DRUGS (1)
  1. PROHANCE [Suspect]
     Active Substance: GADOTERIDOL
     Indication: Diagnostic procedure
     Route: 042
     Dates: start: 20240906, end: 20240906

REACTIONS (2)
  - Nausea [Recovered/Resolved]
  - Retching [Recovered/Resolved]

NARRATIVE: CASE EVENT DATE: 20240906
